FAERS Safety Report 6665382-9 (Version None)
Quarter: 2010Q2

REPORT INFORMATION
  Report Type: 
  Country: None (occurrence: None)
  Receive Date: 20100402
  Receipt Date: 20100324
  Transmission Date: 20101027
  Serious: Yes (Other)
  Sender: FDA-Public Use
  Company Number: BR-JNJFOC-20100308452

PATIENT
  Sex: Female

DRUGS (7)
  1. REMICADE [Suspect]
     Indication: ARTHRITIS
     Route: 042
     Dates: start: 20090909
  2. REMICADE [Suspect]
     Route: 042
     Dates: start: 20090909
  3. REMICADE [Suspect]
     Route: 042
     Dates: start: 20090909
  4. REMICADE [Suspect]
     Route: 042
     Dates: start: 20090909
  5. REMICADE [Suspect]
     Route: 042
     Dates: start: 20090909
  6. REMICADE [Suspect]
     Route: 042
     Dates: start: 20090909
  7. CORTISONE [Suspect]
     Indication: PAIN

REACTIONS (6)
  - ARTHRALGIA [None]
  - DRUG INEFFECTIVE [None]
  - FATIGUE [None]
  - GAIT DISTURBANCE [None]
  - RASH [None]
  - URINARY TRACT INFECTION [None]
